FAERS Safety Report 18890821 (Version 1)
Quarter: 2021Q1

REPORT INFORMATION
  Report Type: Spontaneous
  Country: NL (occurrence: NL)
  Receive Date: 20210215
  Receipt Date: 20210215
  Transmission Date: 20210420
  Serious: Yes (Death, Other)
  Sender: FDA-Public Use
  Company Number: NL-CELLTRION INC.-2020NL024349

PATIENT

DRUGS (3)
  1. TRASTUZUMAB (UNKNOWN) [Suspect]
     Active Substance: TRASTUZUMAB
     Indication: LUNG ADENOCARCINOMA STAGE IV
     Dosage: UNK, Q3WK
     Route: 065
     Dates: start: 20180702, end: 20180910
  2. PERTUZUMAB. [Concomitant]
     Active Substance: PERTUZUMAB
     Indication: LUNG ADENOCARCINOMA STAGE IV
     Dosage: UNK
  3. DOCETAXEL. [Concomitant]
     Active Substance: DOCETAXEL
     Indication: LUNG ADENOCARCINOMA STAGE IV

REACTIONS (4)
  - Pneumonia [Fatal]
  - Disease progression [Fatal]
  - Off label use [Unknown]
  - Therapy partial responder [Unknown]

NARRATIVE: CASE EVENT DATE: 20180702
